FAERS Safety Report 20733986 (Version 12)
Quarter: 2022Q4

REPORT INFORMATION
  Report Type: Spontaneous
  Country: CA (occurrence: CA)
  Receive Date: 20220421
  Receipt Date: 20221114
  Transmission Date: 20230113
  Serious: Yes (Other)
  Sender: FDA-Public Use
  Company Number: CA-CELLTRION INC.-2021CA018654

PATIENT

DRUGS (11)
  1. INFLECTRA [Suspect]
     Active Substance: INFLIXIMAB-DYYB
     Indication: Colitis ulcerative
     Dosage: 1 DF, UNKNOWN DOSE, WEEK 0 RECEIVED IN HOSPITAL
     Route: 041
     Dates: start: 20211124, end: 20211124
  2. INFLECTRA [Suspect]
     Active Substance: INFLIXIMAB-DYYB
     Dosage: 500 MG,  AT WEEK 2 AND 6 THEN Q 8 WEEKS
     Route: 042
     Dates: start: 20211220, end: 20220610
  3. INFLECTRA [Suspect]
     Active Substance: INFLIXIMAB-DYYB
     Dosage: 500 MG, AT WEEK 2 AND 6 THEN Q 8 WEEKS
     Route: 042
     Dates: start: 20211220
  4. INFLECTRA [Suspect]
     Active Substance: INFLIXIMAB-DYYB
     Dosage: 500 MG, WEEKLY, AT WEEK 2 AND 6 THEN Q 8 WEEKS
     Route: 042
     Dates: start: 20220211
  5. INFLECTRA [Suspect]
     Active Substance: INFLIXIMAB-DYYB
     Dosage: 500 MG, AT WEEK 2 AND 6 THEN Q 8 WEEKS
     Route: 042
     Dates: start: 20220408
  6. INFLECTRA [Suspect]
     Active Substance: INFLIXIMAB-DYYB
     Dosage: 500 MG, AT WEEK 2 AND 6 THEN Q 8 WEEKS
     Route: 042
     Dates: start: 20220610
  7. INFLECTRA [Suspect]
     Active Substance: INFLIXIMAB-DYYB
     Dosage: 900 MG (10 MG/KG, EVERY 4 WEEKS)
     Route: 042
     Dates: start: 20220831
  8. INFLECTRA [Suspect]
     Active Substance: INFLIXIMAB-DYYB
     Dosage: 10 MG/KG, EVERY 4 WEEKS (26SEP2022 INCOMPLETE INFUSION)
     Route: 042
     Dates: start: 20220831, end: 20220926
  9. INFLECTRA [Suspect]
     Active Substance: INFLIXIMAB-DYYB
     Dosage: 10 MG/KG, EVERY 4 WEEKS (900 MG), DISCONTINUED
     Route: 042
     Dates: start: 20220831, end: 20220831
  10. INFLECTRA [Suspect]
     Active Substance: INFLIXIMAB-DYYB
     Dosage: 10 MG/KG, EVERY 4 WEEKS (900 MG) (INCOMPLETE INFUSION  )
     Route: 042
     Dates: start: 20220926
  11. PREDNISONE [Concomitant]
     Active Substance: PREDNISONE
     Dosage: UNK
     Route: 048

REACTIONS (27)
  - Pruritus [Recovered/Resolved]
  - Vision blurred [Recovering/Resolving]
  - Dizziness [Recovering/Resolving]
  - Feeling hot [Recovering/Resolving]
  - Chills [Unknown]
  - Paraesthesia [Recovering/Resolving]
  - Hypoaesthesia [Recovering/Resolving]
  - Peripheral swelling [Recovered/Resolved]
  - Feeling cold [Recovered/Resolved]
  - Body temperature decreased [Unknown]
  - Rash [Recovered/Resolved]
  - Swollen tongue [Recovered/Resolved]
  - Rash erythematous [Recovered/Resolved]
  - Condition aggravated [Not Recovered/Not Resolved]
  - Off label use [Unknown]
  - Off label use [Unknown]
  - Inappropriate schedule of product administration [Unknown]
  - Product administration interrupted [Unknown]
  - COVID-19 [Unknown]
  - Blood pressure fluctuation [Recovered/Resolved]
  - Heart rate decreased [Not Recovered/Not Resolved]
  - Gastrointestinal inflammation [Unknown]
  - Mucosal erosion [Unknown]
  - Mucosal haemorrhage [Unknown]
  - Nasopharyngitis [Unknown]
  - Paraesthesia [Unknown]
  - Infusion related reaction [Not Recovered/Not Resolved]

NARRATIVE: CASE EVENT DATE: 20211220
